FAERS Safety Report 4996916-8 (Version None)
Quarter: 2006Q2

REPORT INFORMATION
  Report Type: 
  Country: None (occurrence: None)
  Receive Date: 20060509
  Receipt Date: 20060426
  Transmission Date: 20061013
  Serious: Yes (Life-Threatening, Hospitalization, Disabling, Other)
  Sender: FDA-Public Use
  Company Number: GB-GLAXOSMITHKLINE-B0421378A

PATIENT
  Age: 23 Year
  Sex: Male

DRUGS (2)
  1. PAROXETINE [Suspect]
     Route: 048
     Dates: start: 20021025, end: 20030408
  2. ALCOHOL [Concomitant]
     Route: 065
     Dates: start: 20030407, end: 20030407

REACTIONS (3)
  - ROAD TRAFFIC ACCIDENT [None]
  - SUICIDAL IDEATION [None]
  - SUICIDE ATTEMPT [None]
